FAERS Safety Report 22161557 (Version 1)
Quarter: 2023Q1

REPORT INFORMATION
  Report Type: Spontaneous
  Country: US (occurrence: US)
  Receive Date: 20230331
  Receipt Date: 20230331
  Transmission Date: 20230417
  Serious: Yes (Other)
  Sender: FDA-Public Use
  Company Number: US-BIOVITRUM-2023-US-008077

PATIENT
  Sex: Male
  Weight: 9 kg

DRUGS (8)
  1. SYNAGIS [Suspect]
     Active Substance: PALIVIZUMAB
     Indication: Premature baby
     Dosage: ONCE MONTH
     Route: 030
  2. SYNAGIS [Suspect]
     Active Substance: PALIVIZUMAB
     Indication: Bronchopulmonary dysplasia
  3. SYNAGIS [Suspect]
     Active Substance: PALIVIZUMAB
     Indication: Low birth weight baby
  4. SIMETHICONE (DIMETHICONE) [Concomitant]
     Active Substance: DIMETHICONE
     Indication: Product used for unknown indication
     Dosage: 40MG/0.6ML, DROPS SUSP,
  5. CAROSPIR [Concomitant]
     Active Substance: SPIRONOLACTONE
     Indication: Product used for unknown indication
     Dosage: 25MG/5MLORAL SUSP
  6. DIURIL [Concomitant]
     Active Substance: CHLOROTHIAZIDE
     Indication: Product used for unknown indication
     Dosage: 250MG/5ML, ORAL SUSP
  7. FLOVENT HFA [Concomitant]
     Active Substance: FLUTICASONE PROPIONATE
     Indication: Product used for unknown indication
     Dosage: 44MCG AER W/ADAP
  8. IRON\VITAMINS [Concomitant]
     Active Substance: IRON\VITAMINS
     Indication: Product used for unknown indication
     Dosage: 44MCG AER W/ADAP

REACTIONS (7)
  - Cough [Not Recovered/Not Resolved]
  - Constipation [Not Recovered/Not Resolved]
  - Faeces hard [Not Recovered/Not Resolved]
  - Rhinorrhoea [Not Recovered/Not Resolved]
  - Bowel movement irregularity [Not Recovered/Not Resolved]
  - Haematochezia [Not Recovered/Not Resolved]
  - Product dose omission issue [Unknown]
